FAERS Safety Report 24570070 (Version 1)
Quarter: 2024Q4

REPORT INFORMATION
  Report Type: Spontaneous
  Country: ES (occurrence: ES)
  Receive Date: 20241031
  Receipt Date: 20241031
  Transmission Date: 20250115
  Serious: Yes (Other)
  Sender: FERRING
  Company Number: None

PATIENT

DRUGS (1)
  1. DINOPROSTONE [Suspect]
     Active Substance: DINOPROSTONE
     Indication: Labour induction
     Dosage: 1 EVERY 24HS
     Route: 067
     Dates: start: 20241008, end: 20241008

REACTIONS (1)
  - Device allergy [Recovered/Resolved]

NARRATIVE: CASE EVENT DATE: 20241008
